FAERS Safety Report 6581732-6 (Version None)
Quarter: 2010Q1

REPORT INFORMATION
  Report Type: 
  Country: None (occurrence: None)
  Receive Date: 20100215
  Receipt Date: 20100202
  Transmission Date: 20100710
  Serious: Yes (Other)
  Sender: FDA-Public Use
  Company Number: PHHY2009BR45791

PATIENT
  Sex: Male
  Weight: 72 kg

DRUGS (9)
  1. DIOVAN HCT [Suspect]
     Indication: HYPERTENSION
     Dosage: 160/12.5 MG
     Route: 048
     Dates: start: 20090925
  2. CIPROFIBRATE [Concomitant]
     Indication: CARDIAC DISORDER
     Dosage: 1 DF, QD
     Route: 048
     Dates: start: 20040101
  3. BALCOR [Concomitant]
     Indication: CARDIAC DISORDER
     Dosage: 1 DF, Q12H
     Route: 048
     Dates: start: 20040101
  4. SOMALGIN [Concomitant]
     Indication: CARDIAC DISORDER
     Dosage: 100 MG, 1 TABLET AT LUNCH
     Route: 048
     Dates: start: 20040101
  5. BAMIFIX [Concomitant]
     Indication: PNEUMONIA
     Dosage: 300 MG, Q12H
     Route: 048
     Dates: start: 20090701
  6. FLUIMICIL [Concomitant]
     Indication: PNEUMONIA
     Dosage: 01 SACHET DILUTED IN HOT WATER AT NIGHT
     Route: 048
  7. SYMBICORT [Concomitant]
     Indication: PNEUMONIA
     Dosage: 12/400 MCG, Q12H, TWICE DAILY
     Dates: start: 20090701
  8. BEROTEC [Concomitant]
     Indication: PNEUMONIA
     Dosage: 3 DROPS DILUTED IN 5ML SALINE SOLUTION
     Dates: start: 20090701
  9. ATROVENT [Concomitant]
     Indication: PNEUMONIA
     Dosage: 20 DROPS DILUTED IN 5ML SALINE SOLUTION

REACTIONS (8)
  - BLOOD PRESSURE INADEQUATELY CONTROLLED [None]
  - COUGH [None]
  - DYSPNOEA [None]
  - HYPERTENSION [None]
  - MALAISE [None]
  - NASOPHARYNGITIS [None]
  - PNEUMONIA [None]
  - TREATMENT NONCOMPLIANCE [None]
